FAERS Safety Report 11156650 (Version 1)
Quarter: 2015Q2

REPORT INFORMATION
  Report Type: Spontaneous
  Country: PL (occurrence: PL)
  Receive Date: 20150602
  Receipt Date: 20150602
  Transmission Date: 20150821
  Serious: Yes (Other)
  Sender: FDA-Public Use
  Company Number: PL-TEVA-566758ISR

PATIENT
  Age: 43 Year
  Sex: Female
  Weight: 90 kg

DRUGS (5)
  1. ADM [Suspect]
     Active Substance: DOXORUBICIN
     Indication: MALIGNANT NIPPLE NEOPLASM
     Route: 042
     Dates: start: 20130812, end: 20130812
  2. DEXAVEN [Concomitant]
     Active Substance: DEXAMETHASONE
     Indication: MALIGNANT NIPPLE NEOPLASM
     Route: 042
     Dates: start: 20130812, end: 20130812
  3. DOCETAXEL. [Suspect]
     Active Substance: DOCETAXEL
     Indication: MALIGNANT NIPPLE NEOPLASM
     Route: 042
     Dates: start: 20130812, end: 20130812
  4. ONDANSETRON [Suspect]
     Active Substance: ONDANSETRON
     Indication: MALIGNANT NIPPLE NEOPLASM
     Route: 042
     Dates: start: 20130812, end: 20130812
  5. METOCLOPRAMIDE. [Concomitant]
     Active Substance: METOCLOPRAMIDE
     Indication: MALIGNANT NIPPLE NEOPLASM
     Dosage: DOSE: AMPOULE
     Route: 042
     Dates: start: 20130812, end: 20130812

REACTIONS (2)
  - Dyspnoea [Recovered/Resolved]
  - Anxiety [Recovered/Resolved]

NARRATIVE: CASE EVENT DATE: 20130812
